FAERS Safety Report 5615376-7 (Version None)
Quarter: 2008Q1

REPORT INFORMATION
  Report Type: 
  Country: None (occurrence: None)
  Receive Date: 20080206
  Receipt Date: 20080130
  Transmission Date: 20080703
  Serious: Yes (Hospitalization)
  Sender: FDA-Public Use
  Company Number: PHHO2008BE00747

PATIENT
  Age: 67 Year
  Sex: Female

DRUGS (14)
  1. AEB071 [Suspect]
     Indication: RENAL TRANSPLANT
     Dosage: 300 MG, BID
     Route: 048
     Dates: start: 20080101
  2. AEB071 [Suspect]
     Dosage: 200 MG, BID
     Route: 048
  3. MYFORTIC [Suspect]
     Indication: RENAL TRANSPLANT
     Dosage: 720 MG, BID
     Route: 048
  4. MYFORTIC [Suspect]
     Dosage: 360 MG, TID
     Route: 048
  5. MEDROL [Concomitant]
  6. AMLODIPINE [Concomitant]
  7. MOXONIDINE [Concomitant]
  8. BISOPROLOL [Concomitant]
  9. EUSAPRIM FORTE [Concomitant]
  10. ACYCLOVIR [Concomitant]
  11. RANITIDINE [Concomitant]
  12. ALPRAZOLAM [Concomitant]
  13. TEMOCILLIN [Concomitant]
  14. METOCLOPRAMIDE [Concomitant]

REACTIONS (7)
  - ANOREXIA [None]
  - FUNGAL OESOPHAGITIS [None]
  - GASTRIC ULCER HAEMORRHAGE [None]
  - GASTRITIS [None]
  - NAUSEA [None]
  - REFLUX OESOPHAGITIS [None]
  - VOMITING [None]
